FAERS Safety Report 25578232 (Version 1)
Quarter: 2025Q3

REPORT INFORMATION
  Report Type: Spontaneous
  Country: US (occurrence: US)
  Receive Date: 20250718
  Receipt Date: 20250718
  Transmission Date: 20251021
  Serious: No
  Sender: MILLICENT HOLDINGS
  Company Number: US-Millicent Holdings Ltd.-MILL20250262

PATIENT
  Age: 66 Year
  Sex: Female

DRUGS (2)
  1. INTRAROSA [Suspect]
     Active Substance: PRASTERONE
     Indication: Atrophic vulvovaginitis
     Dosage: ONE TIME A WEEK
     Route: 067
     Dates: start: 20250501
  2. INTRAROSA [Suspect]
     Active Substance: PRASTERONE
     Dosage: DAILY
     Route: 067
     Dates: end: 20250430

REACTIONS (1)
  - Off label use [Unknown]
